FAERS Safety Report 9143357 (Version 2)
Quarter: 2013Q2

REPORT INFORMATION
  Report Type: Spontaneous
  Country: US (occurrence: US)
  Receive Date: 20130306
  Receipt Date: 20130508
  Transmission Date: 20140414
  Serious: Yes (Other)
  Sender: FDA-Public Use
  Company Number: US-SANOFI-AVENTIS-2013SA013208

PATIENT
  Age: 39 Year
  Sex: Male

DRUGS (1)
  1. AUBAGIO [Suspect]
     Indication: MULTIPLE SCLEROSIS
     Route: 048
     Dates: start: 20130202, end: 20130311

REACTIONS (11)
  - Insomnia [Unknown]
  - Delusion [Unknown]
  - Hemiplegia [Unknown]
  - Speech disorder [Unknown]
  - Inflammation [Unknown]
  - Pneumonia [Unknown]
  - Lethargy [Unknown]
  - Nasopharyngitis [Not Recovered/Not Resolved]
  - Feeling abnormal [Not Recovered/Not Resolved]
  - Immune system disorder [Not Recovered/Not Resolved]
  - Chromaturia [Unknown]
